FAERS Safety Report 4893287-2 (Version None)
Quarter: 2006Q1

REPORT INFORMATION
  Report Type: 
  Country: None (occurrence: None)
  Receive Date: 20060124
  Receipt Date: 20051229
  Transmission Date: 20060701
  Serious: Yes (Hospitalization)
  Sender: FDA-Public Use
  Company Number: 6019545

PATIENT
  Age: 76 Year
  Sex: Male

DRUGS (14)
  1. BISOPROLOL FUMARATE [Suspect]
     Dosage: 1 DOSAGE FORMS (1 DOSAGE FORMS, 1 IN 1 D)
     Route: 048
     Dates: start: 20050622, end: 20050712
  2. CLONAZEPAM [Suspect]
     Route: 048
     Dates: start: 20050622, end: 20050712
  3. VILOXAZINE HCL [Suspect]
     Dosage: 600 MG (300 MG, 2 IN 1 D)
     Route: 048
     Dates: start: 20050622, end: 20050712
  4. RISPERDAL [Suspect]
     Dosage: 1 IN 1 D
     Route: 048
     Dates: start: 20050622, end: 20050712
  5. AVODART [Suspect]
     Route: 048
     Dates: start: 20050708, end: 20050712
  6. FUROSEMIDE [Concomitant]
  7. IMOVANE (ZOPICLONE) [Concomitant]
  8. ALLOPURINOL [Concomitant]
  9. SIMVASTATIN [Concomitant]
  10. ASPIRIN [Concomitant]
  11. TAMSULOSIN HCL [Concomitant]
  12. FLUCONAZOLE [Concomitant]
  13. ARANESP [Concomitant]
  14. DUPHALAC [Concomitant]

REACTIONS (14)
  - BLOOD CHLORIDE DECREASED [None]
  - BLOOD CHLORIDE INCREASED [None]
  - BLOOD CREATININE INCREASED [None]
  - CREATININE RENAL CLEARANCE DECREASED [None]
  - CSF PROTEIN INCREASED [None]
  - DEPRESSED LEVEL OF CONSCIOUSNESS [None]
  - ELECTROENCEPHALOGRAM ABNORMAL [None]
  - EPILEPSY [None]
  - GRAND MAL CONVULSION [None]
  - HYPONATRAEMIA [None]
  - LUMBAR PUNCTURE ABNORMAL [None]
  - TENDERNESS [None]
  - TROPONIN INCREASED [None]
  - WHITE BLOOD CELL COUNT INCREASED [None]
